FAERS Safety Report 21370065 (Version 1)
Quarter: 2022Q3

REPORT INFORMATION
  Report Type: Spontaneous
  Country: CN (occurrence: CN)
  Receive Date: 20220923
  Receipt Date: 20220923
  Transmission Date: 20221026
  Serious: Yes (Other)
  Sender: FDA-Public Use
  Company Number: CN-PFIZER INC-PV202200068331

PATIENT
  Age: 75 Year
  Sex: Male
  Weight: 65 kg

DRUGS (3)
  1. TIGECYCLINE [Suspect]
     Active Substance: TIGECYCLINE
     Indication: Anti-infective therapy
     Dosage: 100 MG, 2X/DAY
     Route: 041
     Dates: start: 20220907, end: 20220919
  2. MEROPENEM [Suspect]
     Active Substance: MEROPENEM
     Indication: Anti-infective therapy
     Dosage: 1 G, 2X/DAY
     Route: 041
     Dates: start: 20220908
  3. DEXTROSE [Concomitant]
     Active Substance: DEXTROSE
     Indication: Vehicle solution use
     Dosage: 200 ML, 2X/DAY
     Route: 041
     Dates: start: 20220907, end: 20220919

REACTIONS (5)
  - Diarrhoea [Unknown]
  - Mucous stools [Unknown]
  - Haematochezia [Unknown]
  - Off label use [Unknown]
  - Product use issue [Unknown]

NARRATIVE: CASE EVENT DATE: 20220907
